FAERS Safety Report 8246096-0 (Version None)
Quarter: 2012Q1

REPORT INFORMATION
  Report Type: 
  Country: None (occurrence: None)
  Receive Date: 20120327
  Receipt Date: 20120315
  Transmission Date: 20120608
  Serious: Yes (Hospitalization, Other)
  Sender: FDA-Public Use
  Company Number: AUR-APL-2012-01163

PATIENT
  Age: 26 Year
  Sex: Male
  Weight: 69.39 kg

DRUGS (3)
  1. MECLIZINE [Concomitant]
  2. BENZYLPENICILLIN POTASSIUM (BENZYLPENICILLIN POTASSIUM) [Suspect]
     Indication: PRODUCT USED FOR UNKNOWN INDICATION
  3. AMOXICILLIN [Suspect]
     Indication: CHRONIC SINUSITIS
     Dosage: 1500 MG (500 MG, 3 IN 1 D), ORAL
     Route: 048
     Dates: start: 20111205, end: 20111216

REACTIONS (18)
  - FEELING ABNORMAL [None]
  - RASH [None]
  - ABDOMINAL DISCOMFORT [None]
  - EAR INFECTION [None]
  - WEIGHT DECREASED [None]
  - EYE DISORDER [None]
  - VIITH NERVE PARALYSIS [None]
  - SKIN DISCOLOURATION [None]
  - TINNITUS [None]
  - INFECTION [None]
  - SWELLING FACE [None]
  - PENILE PAIN [None]
  - SKIN DISORDER [None]
  - DYSURIA [None]
  - HYPOAESTHESIA [None]
  - NERVE INJURY [None]
  - PRODUCT COUNTERFEIT [None]
  - CHRONIC SINUSITIS [None]
